FAERS Safety Report 7024698-7 (Version None)
Quarter: 2010Q4

REPORT INFORMATION
  Report Type: 
  Country: None (occurrence: None)
  Receive Date: 20101001
  Receipt Date: 20100922
  Transmission Date: 20110411
  Serious: Yes (Other)
  Sender: FDA-Public Use
  Company Number: US-PFIZER INC-2010120515

PATIENT
  Sex: Female

DRUGS (1)
  1. CHANTIX [Suspect]
     Dosage: UNK
     Dates: start: 20080905

REACTIONS (6)
  - DISTURBANCE IN ATTENTION [None]
  - IRRITABILITY [None]
  - LOSS OF CONSCIOUSNESS [None]
  - PANIC ATTACK [None]
  - PARANOIA [None]
  - SUICIDAL IDEATION [None]
